FAERS Safety Report 5032992-4 (Version None)
Quarter: 2006Q2

REPORT INFORMATION
  Report Type: 
  Country: None (occurrence: None)
  Receive Date: 20060622
  Receipt Date: 20060530
  Transmission Date: 20061013
  Serious: Yes (Other)
  Sender: FDA-Public Use
  Company Number: PHFR2006GB01972

PATIENT

DRUGS (1)
  1. NEORAL [Suspect]

REACTIONS (2)
  - ACUTE PSYCHOSIS [None]
  - IMMUNOSUPPRESSANT DRUG LEVEL INCREASED [None]
